FAERS Safety Report 6801249-0 (Version None)
Quarter: 2010Q2

REPORT INFORMATION
  Report Type: 
  Country: None (occurrence: None)
  Receive Date: 20100629
  Receipt Date: 20100616
  Transmission Date: 20101027
  Serious: No
  Sender: FDA-Public Use
  Company Number: US-B.I. PHARMACEUTICALS,INC./RIDGEFIELD-2010-BP-06826BP

PATIENT
  Age: 71 Year
  Sex: Female

DRUGS (3)
  1. AGGRENOX [Suspect]
     Indication: TRANSIENT ISCHAEMIC ATTACK
     Dosage: 25/200; 50MG/400MG
     Route: 048
     Dates: start: 20091212
  2. ATENOLOL [Concomitant]
     Indication: HYPERTENSION
  3. LIPITOR [Concomitant]
     Indication: BLOOD CHOLESTEROL INCREASED

REACTIONS (3)
  - BLOOD PRESSURE DIASTOLIC INCREASED [None]
  - HEADACHE [None]
  - MALAISE [None]
